FAERS Safety Report 8963782 (Version 3)
Quarter: 2013Q2

REPORT INFORMATION
  Report Type: Spontaneous
  Country: PT (occurrence: PT)
  Receive Date: 20121214
  Receipt Date: 20130425
  Transmission Date: 20140414
  Serious: Yes (Disabling)
  Sender: FDA-Public Use
  Company Number: PT-009507513-1212PRT003667

PATIENT
  Age: 79 Year
  Sex: Female
  Weight: 60 kg

DRUGS (9)
  1. FOSAVANCE [Suspect]
     Indication: OSTEOPOROSIS
     Dosage: 1 DF, QD
     Route: 048
     Dates: start: 20121126, end: 20121126
  2. CASTILIUM [Concomitant]
     Indication: HYPERTENSION
     Dosage: 10 MG, QD
     Route: 048
  3. CASTILIUM [Concomitant]
     Route: 048
  4. OVESTIN [Concomitant]
     Indication: MENOPAUSE
     Dosage: 1 DF, BIW
     Route: 067
  5. OVESTIN [Concomitant]
     Route: 067
  6. ASPIRIN [Concomitant]
     Indication: THROMBOSIS PROPHYLAXIS
     Dosage: 100 MG, QD
     Route: 048
  7. CILAZAPRIL [Concomitant]
     Indication: HYPERTENSION
     Dosage: 5 MG, QD
     Route: 048
  8. CILAZAPRIL [Concomitant]
     Route: 048
  9. AMLODIPINE [Concomitant]
     Indication: HYPERTENSION
     Dosage: 5 MG, QD
     Route: 048

REACTIONS (10)
  - Arthritis [Recovered/Resolved]
  - Myalgia [Recovered/Resolved]
  - Posture abnormal [Recovered/Resolved]
  - Gingival infection [Recovered/Resolved]
  - Pain [Recovered/Resolved]
  - Mastication disorder [Recovered/Resolved]
  - Headache [Recovered/Resolved]
  - Joint swelling [Recovered/Resolved]
  - Arthralgia [Recovered/Resolved]
  - Back pain [Recovered/Resolved]
